FAERS Safety Report 14434488 (Version 3)
Quarter: 2018Q1

REPORT INFORMATION
  Report Type: Spontaneous
  Country: JP (occurrence: JP)
  Receive Date: 20180124
  Receipt Date: 20180307
  Transmission Date: 20180509
  Serious: Yes (Life-Threatening)
  Sender: FDA-Public Use
  Company Number: JP-ABBVIE-18P-087-2234846-00

PATIENT
  Age: 80 Year
  Sex: Male

DRUGS (10)
  1. FUROSEMIDE. [Concomitant]
     Active Substance: FUROSEMIDE
     Indication: BLOOD PRESSURE MANAGEMENT
     Route: 048
  2. IFENPRODIL TARTRATE [Concomitant]
     Active Substance: IFENPRODIL TARTRATE
     Indication: ATRIAL FIBRILLATION
  3. PILSICAINIDE HYDROCHLORIDE HYDRATE [Concomitant]
     Active Substance: PILSICAINIDE HYDROCHLORIDE HEMIHYDRATE
     Indication: PRODUCT USED FOR UNKNOWN INDICATION
     Dates: start: 20180112, end: 20180122
  4. VERAPAMIL HYDROCHLORIDE. [Concomitant]
     Active Substance: VERAPAMIL HYDROCHLORIDE
     Indication: PRODUCT USED FOR UNKNOWN INDICATION
     Route: 048
     Dates: start: 20180113, end: 20180122
  5. BISOPROLOL FUMARATE. [Concomitant]
     Active Substance: BISOPROLOL FUMARATE
     Indication: ATRIAL FIBRILLATION
  6. MAVIRET [Suspect]
     Active Substance: GLECAPREVIR\PIBRENTASVIR
     Indication: HEPATIC CIRRHOSIS
     Route: 048
     Dates: start: 20180105, end: 20180122
  7. TAMSULOSIN HYDROCHLORIDE. [Concomitant]
     Active Substance: TAMSULOSIN HYDROCHLORIDE
     Indication: PRODUCT USED FOR UNKNOWN INDICATION
  8. AZILSARTAN [Concomitant]
     Active Substance: AZILSARTAN KAMEDOXOMIL
     Indication: BLOOD PRESSURE MANAGEMENT
     Route: 048
     Dates: start: 20180105, end: 20180122
  9. MAVIRET [Suspect]
     Active Substance: GLECAPREVIR\PIBRENTASVIR
     Indication: HEPATITIS C
     Route: 048
     Dates: start: 20180126, end: 20180203
  10. EDOXABAN TOSILATE HYDRATE [Concomitant]
     Indication: ATRIAL FIBRILLATION
     Route: 048
     Dates: start: 20180105, end: 20180122

REACTIONS (8)
  - Atrial fibrillation [Recovering/Resolving]
  - Loss of consciousness [Recovered/Resolved]
  - Fall [Unknown]
  - Shock [Unknown]
  - Hypotension [Recovering/Resolving]
  - Tachycardia [Recovering/Resolving]
  - Toxicity to various agents [Recovering/Resolving]
  - Pulse absent [Recovered/Resolved]

NARRATIVE: CASE EVENT DATE: 20180111
